FAERS Safety Report 11225404 (Version 1)
Quarter: 2015Q2

REPORT INFORMATION
  Report Type: Spontaneous
  Country: US (occurrence: US)
  Receive Date: 20150629
  Receipt Date: 20150629
  Transmission Date: 20150821
  Serious: No
  Sender: FDA-Public Use
  Company Number: US-BRACCO-011389

PATIENT
  Age: 35 Year
  Sex: Female
  Weight: 138 kg

DRUGS (3)
  1. VOLUMEN [Concomitant]
     Active Substance: BARIUM SULFATE
     Dosage: 1 BOTTLE (450 ML) GIVEN AT 0500 HR AND ANOTHER BOTTLE GIVEN AT 0600 HR
     Route: 048
     Dates: start: 20141013
  2. MULTIHANCE [Suspect]
     Active Substance: GADOBENATE DIMEGLUMINE
     Indication: NUCLEAR MAGNETIC RESONANCE IMAGING
     Route: 042
     Dates: start: 20141013, end: 20141013
  3. GLUCAGON. [Concomitant]
     Active Substance: GLUCAGON
     Dosage: GIVEN AT 0650 HR (50MG/ML/VIAL)
     Route: 042
     Dates: start: 20141013

REACTIONS (6)
  - Lip swelling [Recovered/Resolved]
  - Urticaria [Recovered/Resolved]
  - Dyspnoea [Recovered/Resolved]
  - Respiratory disorder [Recovered/Resolved]
  - Pruritus [Recovered/Resolved]
  - Dysphagia [Recovered/Resolved]

NARRATIVE: CASE EVENT DATE: 20141013
